FAERS Safety Report 5444957-9 (Version None)
Quarter: 2007Q3

REPORT INFORMATION
  Report Type: 
  Country: None (occurrence: None)
  Receive Date: 20070906
  Receipt Date: 20070824
  Transmission Date: 20080115
  Serious: Yes (Hospitalization)
  Sender: FDA-Public Use
  Company Number: US-ROCHE-513358

PATIENT
  Sex: Female
  Weight: 62.3 kg

DRUGS (6)
  1. CAPECITABINE [Suspect]
     Indication: COLORECTAL CANCER
     Dosage: 5 DAYS PER WEEK. CUMULATIVE DOSE: 87000 MG
     Route: 048
     Dates: start: 20061112, end: 20061221
  2. OXALIPLATIN [Suspect]
     Indication: COLORECTAL CANCER
     Dosage: OVER 2 HOURS DAYS 1, 8, 15, 22, 29.
     Route: 042
     Dates: start: 20061113
  3. OXALIPLATIN [Suspect]
     Dosage: ON DAY 1. TOTAL DOSE ADMINISTERED: 145 MG.
     Route: 042
     Dates: start: 20070405, end: 20070405
  4. LEUCOVORIN CALCIUM [Suspect]
     Indication: COLORECTAL CANCER
     Dosage: ON DAY 1. TOTAL DOSE ADMINISTERED: 682 MG.
     Route: 042
     Dates: start: 20070405, end: 20070405
  5. FLUOROURACIL [Suspect]
     Indication: COLORECTAL CANCER
     Dosage: CONTINUOUS INFUSION OVER 46 HRS. TOTAL DOSE ADMINISTERED 4774 MG.
     Route: 042
     Dates: start: 20070405, end: 20070407
  6. FLUOROURACIL [Suspect]
     Dosage: BOLUS
     Route: 040
     Dates: start: 20070405, end: 20070407

REACTIONS (6)
  - ABDOMINAL PAIN [None]
  - DEHYDRATION [None]
  - DIARRHOEA [None]
  - GASTRITIS [None]
  - NAUSEA [None]
  - VOMITING [None]
